FAERS Safety Report 23139051 (Version 1)
Quarter: 2023Q4

REPORT INFORMATION
  Report Type: Spontaneous
  Country: US (occurrence: None)
  Receive Date: 20231101
  Receipt Date: 20231101
  Transmission Date: 20240110
  Serious: Yes (Disabling, Other)
  Sender: FDA-Public Use
  Company Number: None

PATIENT
  Age: 83 Year
  Sex: Female
  Weight: 48.6 kg

DRUGS (6)
  1. DIFLUPREDNATE OPHTHALMIC EMULSION [Suspect]
     Active Substance: DIFLUPREDNATE
     Indication: Retinal injury
     Dosage: OTHER QUANTITY : 1 DROP(S);?FREQUENCY : 4 TIMES A DAY;?
     Route: 047
     Dates: start: 20230823, end: 20231019
  2. SIMVASTATIN [Concomitant]
     Active Substance: SIMVASTATIN
  3. VENLAFAXINE [Concomitant]
     Active Substance: VENLAFAXINE HYDROCHLORIDE
  4. BUPROPION [Concomitant]
     Active Substance: BUPROPION
  5. THYROXINE [Concomitant]
     Active Substance: LEVOTHYROXINE
  6. vitamin D-suppplemented ORANGE JUICE [Concomitant]

REACTIONS (2)
  - Eyelid ptosis [None]
  - Visual impairment [None]

NARRATIVE: CASE EVENT DATE: 20231026
